FAERS Safety Report 7780268-4 (Version None)
Quarter: 2011Q3

REPORT INFORMATION
  Report Type: 
  Country: None (occurrence: None)
  Receive Date: 20110927
  Receipt Date: 20110921
  Transmission Date: 20111222
  Serious: Yes (Hospitalization)
  Sender: FDA-Public Use
  Company Number: US-ACTELION-A-US2011-52540

PATIENT

DRUGS (3)
  1. TRACLEER [Suspect]
     Indication: PULMONARY ARTERIAL HYPERTENSION
     Dosage: UNK MG, UNK
     Route: 048
     Dates: start: 20091102
  2. CALCIUM CHANNEL BLOCKERS [Concomitant]
  3. ASPIRIN [Concomitant]

REACTIONS (6)
  - ARTERIAL RUPTURE [None]
  - AORTIC BYPASS [None]
  - FEMORAL ARTERY OCCLUSION [None]
  - ANGIOPLASTY [None]
  - PNEUMONIA [None]
  - STENT PLACEMENT [None]
